FAERS Safety Report 8459247-X (Version None)
Quarter: 2012Q2

REPORT INFORMATION
  Report Type: 
  Country: None (occurrence: None)
  Receive Date: 20120618
  Receipt Date: 20120608
  Transmission Date: 20120825
  Serious: Yes (Other)
  Sender: FDA-Public Use
  Company Number: 2012-00127

PATIENT
  Age: 37 Year
  Sex: Male
  Weight: 90.7194 kg

DRUGS (5)
  1. OXYMETAZOLINE HYDROCHLORIDE SPRAY [Suspect]
     Indication: NASAL CONGESTION
     Dosage: 1-2 SPRAYS IN EACH NOSTRIL DAILY
     Dates: start: 20120401, end: 20120606
  2. CARVEDILOT [Concomitant]
  3. NASONEX [Concomitant]
  4. INSULIN [Concomitant]
  5. SYNTHROID [Concomitant]

REACTIONS (6)
  - PANIC ATTACK [None]
  - STRESS [None]
  - CHEST DISCOMFORT [None]
  - INTENTIONAL DRUG MISUSE [None]
  - SELF-INJURIOUS IDEATION [None]
  - ANXIETY [None]
